FAERS Safety Report 7564495-7 (Version None)
Quarter: 2011Q2

REPORT INFORMATION
  Report Type: 
  Country: None (occurrence: None)
  Receive Date: 20110622
  Receipt Date: 20110617
  Transmission Date: 20111010
  Serious: Yes (Death)
  Sender: FDA-Public Use
  Company Number: PHHY2011MA53991

PATIENT
  Age: 56 Year
  Sex: Male
  Weight: 76 kg

DRUGS (3)
  1. EXFORGE [Suspect]
     Indication: HYPERTENSION
     Dosage: VALSARTAN 160 AND AMLODIPINE 10 DAILY
     Route: 048
     Dates: start: 20091125
  2. INSULINE [Concomitant]
  3. ALLOPURINOL [Concomitant]

REACTIONS (1)
  - DEATH [None]
